FAERS Safety Report 21331537 (Version 6)
Quarter: 2023Q2

REPORT INFORMATION
  Report Type: Report from Study
  Country: US (occurrence: US)
  Receive Date: 20220914
  Receipt Date: 20230613
  Transmission Date: 20230721
  Serious: Yes (Hospitalization)
  Sender: FDA-Public Use
  Company Number: US-ARGENX-2022-ARGX-US001757

PATIENT

DRUGS (2)
  1. VYVGART [Suspect]
     Active Substance: EFGARTIGIMOD ALFA-FCAB
     Indication: Myasthenia gravis
     Dosage: 820 MG, 1/WEEK
     Route: 042
     Dates: start: 20220627, end: 20220718
  2. VYVGART [Suspect]
     Active Substance: EFGARTIGIMOD ALFA-FCAB
     Dosage: 800 MG, 1/WEEK
     Route: 042
     Dates: start: 20230324

REACTIONS (5)
  - Myasthenia gravis crisis [Unknown]
  - Fall [Unknown]
  - Pre-existing condition improved [Unknown]
  - Therapeutic product effect decreased [Unknown]
  - Asthenia [Unknown]
